FAERS Safety Report 7901215-8 (Version None)
Quarter: 2011Q4

REPORT INFORMATION
  Report Type: 
  Country: None (occurrence: None)
  Receive Date: 20111108
  Receipt Date: 20111025
  Transmission Date: 20120403
  Serious: Yes (Other)
  Sender: FDA-Public Use
  Company Number: PHEH2011US07968

PATIENT
  Sex: Female

DRUGS (1)
  1. SANDOSTATIN [Suspect]
     Indication: ACROMEGALY
     Dosage: 100 UG, 6QD
     Route: 030

REACTIONS (3)
  - NEOPLASM MALIGNANT [None]
  - GENERAL PHYSICAL HEALTH DETERIORATION [None]
  - BLOOD GROWTH HORMONE ABNORMAL [None]
